FAERS Safety Report 8063848-0 (Version None)
Quarter: 2012Q1

REPORT INFORMATION
  Report Type: 
  Country: None (occurrence: None)
  Receive Date: 20120123
  Receipt Date: 20120109
  Transmission Date: 20120608
  Serious: Yes (Death)
  Sender: FDA-Public Use
  Company Number: US-MERCK-1201USA02211

PATIENT
  Age: 38 Year
  Sex: Female

DRUGS (8)
  1. GASTROINTESTINAL PREPARATIONS (UNSPECIFIED) [Suspect]
     Route: 048
  2. PRINIVIL [Suspect]
     Route: 048
  3. HYDROCODONE [Suspect]
     Route: 048
  4. ALCOHOL [Suspect]
     Route: 048
  5. DIAZEPAM [Suspect]
     Route: 048
  6. CODEINE [Suspect]
     Route: 048
  7. METHADONE HYDROCHLORIDE [Suspect]
     Route: 048
  8. PROPOXYPHENE HCL [Suspect]
     Route: 048

REACTIONS (2)
  - COMPLETED SUICIDE [None]
  - OVERDOSE [None]
